FAERS Safety Report 8784089 (Version 1)
Quarter: 2012Q4

REPORT INFORMATION
  Report Type: 
  Country: US (occurrence: US)
  Receive Date: 20120913
  Receipt Date: 20120913
  Transmission Date: 20130627
  Serious: Yes (Other)
  Sender: FDA-Public Use
  Company Number: US-VERTEX PHARMACEUTICAL INC.-AE-2012-009385

PATIENT
  Age: 51 Year
  Sex: Female
  Weight: 70 kg

DRUGS (4)
  1. INCIVEK [Suspect]
     Indication: HEPATITIS C
     Route: 048
     Dates: start: 20120406, end: 20120622
  2. RIBAVIRIN [Concomitant]
     Indication: HEPATITIS C
     Route: 048
     Dates: start: 20120406, end: 20120618
  3. RIBAVIRIN [Concomitant]
     Route: 048
     Dates: start: 20120619
  4. PEGASYS [Concomitant]
     Indication: HEPATITIS C
     Route: 058
     Dates: start: 20120406

REACTIONS (2)
  - Red blood cell count decreased [Not Recovered/Not Resolved]
  - Anorectal discomfort [Not Recovered/Not Resolved]
